FAERS Safety Report 6025021-7 (Version None)
Quarter: 2008Q4

REPORT INFORMATION
  Report Type: 
  Country: None (occurrence: None)
  Receive Date: 20081231
  Receipt Date: 20081222
  Transmission Date: 20090506
  Serious: Yes (Death)
  Sender: FDA-Public Use
  Company Number: US-JNJFOC-20080705622

PATIENT
  Sex: Male
  Weight: 84.82 kg

DRUGS (8)
  1. DURAGESIC-100 [Suspect]
     Indication: BACK PAIN
     Route: 062
  2. ALPRAZOLAM [Concomitant]
  3. CITALOPRAM [Concomitant]
  4. HYDROCODONE [Concomitant]
  5. PAROXETINE HCL [Concomitant]
  6. TEMAZEPAM [Concomitant]
  7. PEG-INTRON [Concomitant]
     Indication: HEPATITIS C
  8. RIBAVIRIN [Concomitant]

REACTIONS (10)
  - ARTERIOSCLEROSIS CORONARY ARTERY [None]
  - BRAIN OEDEMA [None]
  - DRUG ADMINISTRATION ERROR [None]
  - DRUG SCREEN POSITIVE [None]
  - DRUG TOXICITY [None]
  - HEPATIC STEATOSIS [None]
  - NEPHROSCLEROSIS [None]
  - PULMONARY OEDEMA [None]
  - UNRESPONSIVE TO STIMULI [None]
  - WRONG TECHNIQUE IN DRUG USAGE PROCESS [None]
